FAERS Safety Report 6113561-1 (Version None)
Quarter: 2009Q1

REPORT INFORMATION
  Report Type: 
  Country: None (occurrence: None)
  Receive Date: 20090312
  Receipt Date: 20090306
  Transmission Date: 20090719
  Serious: Yes (Hospitalization)
  Sender: FDA-Public Use
  Company Number: JP-EISAI MEDICAL RESEARCH-E2090-00670-SPO-JP

PATIENT
  Sex: Male

DRUGS (9)
  1. EXCEGRAN [Suspect]
     Indication: EPILEPSY
     Route: 048
     Dates: start: 20081103, end: 20081121
  2. SLO-BID [Concomitant]
     Indication: BRONCHITIS CHRONIC
     Route: 048
     Dates: start: 20081102
  3. WARFARIN SODIUM [Concomitant]
     Indication: CEREBRAL INFARCTION
     Route: 048
     Dates: start: 20081102
  4. WARFARIN SODIUM [Concomitant]
     Indication: ATRIAL FIBRILLATION
  5. ASPIRIN [Concomitant]
     Indication: ATRIAL FIBRILLATION
     Route: 048
     Dates: start: 20081102
  6. ASPIRIN [Concomitant]
     Indication: CEREBRAL INFARCTION
  7. AMLODIPINE [Concomitant]
     Route: 048
     Dates: start: 20081102
  8. HOKUNALIN: TAPE [Concomitant]
     Indication: BRONCHITIS CHRONIC
     Dates: start: 20081102
  9. TAKEPRON [Concomitant]
     Indication: GASTRIC ULCER
     Route: 048
     Dates: start: 20081125, end: 20081212

REACTIONS (1)
  - STEVENS-JOHNSON SYNDROME [None]
